FAERS Safety Report 17523964 (Version 1)
Quarter: 2020Q1

REPORT INFORMATION
  Report Type: Spontaneous
  Country: US (occurrence: US)
  Receive Date: 20200302
  Receipt Date: 20200302
  Transmission Date: 20200409
  Serious: Yes (Other)
  Sender: FDA-Public Use
  Company Number: None

PATIENT
  Age: 27 Year
  Sex: Female
  Weight: 138.35 kg

DRUGS (4)
  1. EFFEXOR [Suspect]
     Active Substance: VENLAFAXINE HYDROCHLORIDE
  2. NO DRUG NAME [Concomitant]
  3. BUSPAR [Suspect]
     Active Substance: BUSPIRONE HYDROCHLORIDE
  4. ABILIFY [Suspect]
     Active Substance: ARIPIPRAZOLE

REACTIONS (2)
  - Labour induction [None]
  - Pre-eclampsia [None]

NARRATIVE: CASE EVENT DATE: 20190105
